FAERS Safety Report 21558240 (Version 1)
Quarter: 2022Q4

REPORT INFORMATION
  Report Type: Spontaneous
  Country: AU (occurrence: AU)
  Receive Date: 20221107
  Receipt Date: 20221107
  Transmission Date: 20230113
  Serious: Yes (Life-Threatening, Hospitalization, Other)
  Sender: FDA-Public Use
  Company Number: AU-SUN PHARMACEUTICAL INDUSTRIES LTD-2021R1-322921

PATIENT
  Age: 54 Year
  Sex: Female

DRUGS (5)
  1. METHADONE [Suspect]
     Active Substance: METHADONE HYDROCHLORIDE
     Indication: Product used for unknown indication
     Dosage: UNK
     Route: 065
  2. OXYCODONE [Suspect]
     Active Substance: OXYCODONE
     Indication: Product used for unknown indication
     Dosage: UNK
     Route: 065
  3. DULOXETINE [Concomitant]
     Active Substance: DULOXETINE
     Indication: Product used for unknown indication
     Dosage: UNK
     Route: 065
  4. TAPENTADOL [Concomitant]
     Active Substance: TAPENTADOL
     Indication: Product used for unknown indication
     Dosage: UNK
     Route: 065
  5. PREGABALIN [Concomitant]
     Active Substance: PREGABALIN
     Indication: Product used for unknown indication
     Dosage: UNK
     Route: 065

REACTIONS (2)
  - Hypoglycaemia [Unknown]
  - Toxicity to various agents [Unknown]
